FAERS Safety Report 23098413 (Version 1)
Quarter: 2023Q4

REPORT INFORMATION
  Report Type: Spontaneous
  Country: JP (occurrence: JP)
  Receive Date: 20231023
  Receipt Date: 20231023
  Transmission Date: 20240109
  Serious: Yes (Hospitalization)
  Sender: FDA-Public Use
  Company Number: JP-Eisai Medical Research-EC-2023-148829

PATIENT
  Age: 64 Year
  Sex: Male
  Weight: 66.1 kg

DRUGS (8)
  1. RABEPRAZOLE [Suspect]
     Active Substance: RABEPRAZOLE
     Indication: Gastrointestinal disorder prophylaxis
     Route: 048
  2. PAZOPANIB [Interacting]
     Active Substance: PAZOPANIB
     Indication: Renal cancer
     Route: 048
  3. PAZOPANIB [Interacting]
     Active Substance: PAZOPANIB
     Route: 048
  4. FEBUXOSTAT [Concomitant]
     Active Substance: FEBUXOSTAT
     Indication: Hyperuricaemia
     Route: 048
  5. AMLODIPINE BESYLATE [Concomitant]
     Active Substance: AMLODIPINE BESYLATE
     Indication: Hypertension
     Route: 048
  6. LEVOTHYROXINE SODIUM [Concomitant]
     Active Substance: LEVOTHYROXINE SODIUM
     Indication: Hypothyroidism
     Route: 048
  7. LOXOPROFEN SODIUM DIHYDRATE [Concomitant]
     Active Substance: LOXOPROFEN SODIUM DIHYDRATE
     Indication: Renal cancer stage IV
     Route: 062
  8. LOXOPROFEN SODIUM DIHYDRATE [Concomitant]
     Active Substance: LOXOPROFEN SODIUM DIHYDRATE
     Indication: Renal cancer stage IV
     Route: 062

REACTIONS (5)
  - Malignant pleural effusion [Unknown]
  - Pleural effusion [Recovered/Resolved]
  - Drug interaction [Unknown]
  - Concomitant drug effect decreased [Unknown]
  - Off label use [Unknown]
